FAERS Safety Report 8143550-7 (Version None)
Quarter: 2012Q1

REPORT INFORMATION
  Report Type: 
  Country: None (occurrence: None)
  Receive Date: 20120217
  Receipt Date: 20101228
  Transmission Date: 20120608
  Serious: No
  Sender: FDA-Public Use
  Company Number: US-GLAXOSMITHKLINE-A0881649A

PATIENT
  Sex: Female

DRUGS (1)
  1. VOTRIENT [Suspect]
     Indication: PRODUCT USED FOR UNKNOWN INDICATION
     Dosage: 800MG PER DAY
     Route: 048
     Dates: start: 20100605

REACTIONS (2)
  - VISUAL IMPAIRMENT [None]
  - THERAPEUTIC RESPONSE UNEXPECTED [None]
